FAERS Safety Report 5761319-5 (Version None)
Quarter: 2008Q2

REPORT INFORMATION
  Report Type: 
  Country: None (occurrence: None)
  Receive Date: 20080606
  Receipt Date: 20080602
  Transmission Date: 20081010
  Serious: Yes (Hospitalization)
  Sender: FDA-Public Use
  Company Number: FR-ROCHE-568312

PATIENT
  Sex: Female

DRUGS (14)
  1. NAPROXEN SODIUM [Suspect]
     Indication: DRUG USE FOR UNKNOWN INDICATION
     Route: 048
     Dates: start: 20080327, end: 20080331
  2. MAXIDROL [Suspect]
     Indication: DRUG USE FOR UNKNOWN INDICATION
     Dosage: DRUG NAME MAXIDROL COLLYRE
     Route: 031
     Dates: start: 20080327, end: 20080331
  3. MAXIDROL [Suspect]
     Dosage: DRUG NAME MAXIDROL COLLYRE
     Route: 031
     Dates: start: 20080327, end: 20080331
  4. MAXIDROL [Suspect]
     Dosage: DRUG NAME MAXIDROL COLLYRE
     Route: 031
     Dates: start: 20080327, end: 20080331
  5. DETURGYLONE [Concomitant]
     Indication: SINUSITIS
     Dosage: ROUTE NASAL
     Route: 050
     Dates: start: 20080301
  6. DETURGYLONE [Concomitant]
     Dosage: ROUTE NASAL
     Route: 050
     Dates: start: 20080301
  7. PREDNISONE [Concomitant]
     Indication: PAIN
     Route: 048
     Dates: start: 20080301
  8. AUGMENTIN '125' [Concomitant]
     Route: 048
     Dates: start: 20080301
  9. AUGMENTIN '125' [Concomitant]
     Route: 048
     Dates: start: 20080301
  10. ORELOX [Concomitant]
     Indication: SINUSITIS
     Dates: start: 20080201
  11. IBUPROFENE [Concomitant]
  12. DERINOX [Concomitant]
     Indication: SINUSITIS
     Dates: start: 20080201
  13. DERINOX [Concomitant]
     Dates: start: 20080201
  14. DERINOX [Concomitant]
     Dates: start: 20080201

REACTIONS (4)
  - CYTOLYTIC HEPATITIS [None]
  - EOSINOPHILIA [None]
  - INTERSTITIAL LUNG DISEASE [None]
  - RASH [None]
